FAERS Safety Report 18994801 (Version 1)
Quarter: 2021Q1

REPORT INFORMATION
  Report Type: Spontaneous
  Country: US (occurrence: US)
  Receive Date: 20210310
  Receipt Date: 20210310
  Transmission Date: 20210420
  Serious: No
  Sender: FDA-Public Use
  Company Number: US-SIGMAPHARM LABORATORIES, LLC-2021SIG00004

PATIENT
  Sex: Male

DRUGS (1)
  1. ASENAPINE. [Suspect]
     Active Substance: ASENAPINE
     Dosage: UNK
     Dates: start: 202101

REACTIONS (3)
  - Product substitution issue [Not Recovered/Not Resolved]
  - Abnormal behaviour [Unknown]
  - Product solubility abnormal [Unknown]

NARRATIVE: CASE EVENT DATE: 202101
